FAERS Safety Report 15325519 (Version 1)
Quarter: 2018Q3

REPORT INFORMATION
  Report Type: Spontaneous
  Country: PK (occurrence: PK)
  Receive Date: 20180828
  Receipt Date: 20180828
  Transmission Date: 20181010
  Serious: Yes (Other)
  Sender: FDA-Public Use
  Company Number: PK-MYLANLABS-2018M1063366

PATIENT
  Age: 11 Month
  Sex: Male
  Weight: 27 kg

DRUGS (1)
  1. TRIAMCINOLONE [Suspect]
     Active Substance: TRIAMCINOLONE
     Indication: RASH
     Route: 061

REACTIONS (2)
  - Metabolic alkalosis [Unknown]
  - Cushing^s syndrome [Recovered/Resolved]
